FAERS Safety Report 8484597 (Version 9)
Quarter: 2012Q4

REPORT INFORMATION
  Report Type: Report from Study
  Country: FR (occurrence: FR)
  Receive Date: 20120330
  Receipt Date: 20121015
  Transmission Date: 20130627
  Serious: Yes (Hospitalization)
  Sender: FDA-Public Use
  Company Number: FR-NOVOPROD-346028

PATIENT
  Age: 76 Year
  Sex: Male
  Weight: 78.5 kg

DRUGS (2)
  1. LIRAGLUTIDE FLEXPEN [Suspect]
     Indication: TYPE 2 DIABETES MELLITUS
     Dosage: 1.8 mg, qd
     Route: 058
     Dates: start: 20110819, end: 20120223
  2. LIRAGLUTIDE FLEXPEN [Suspect]
     Dosage: 0.6 mg, qd
     Route: 058
     Dates: start: 20120827

REACTIONS (1)
  - Lipase increased [Recovered/Resolved]
